FAERS Safety Report 8171524-9 (Version None)
Quarter: 2012Q1

REPORT INFORMATION
  Report Type: 
  Country: None (occurrence: None)
  Receive Date: 20120228
  Receipt Date: 20120223
  Transmission Date: 20120608
  Serious: Yes (Hospitalization)
  Sender: FDA-Public Use
  Company Number: JP-ABBOTT-12P-087-0908316-00

PATIENT
  Sex: Male
  Weight: 52 kg

DRUGS (10)
  1. CLOSTRIDIUM BUTYRICUM [Concomitant]
     Indication: CROHN'S DISEASE
     Dosage: 6 DOSAGE FORMS DAILY
     Route: 048
  2. CIPROFLOXACIN [Concomitant]
     Indication: CROHN'S DISEASE
     Dosage: 400 MG DAILY
     Route: 048
     Dates: start: 20110120, end: 20110202
  3. HUMIRA [Suspect]
     Dates: start: 20110120, end: 20110120
  4. HUMIRA [Suspect]
     Indication: CROHN'S DISEASE
     Route: 058
     Dates: start: 20110105, end: 20110105
  5. HUMIRA [Suspect]
     Dates: start: 20110203, end: 20110210
  6. PREDNISOLONE [Concomitant]
     Indication: CROHN'S DISEASE
     Dosage: 2.5 MG DAILY
     Route: 048
  7. MESALAMINE [Concomitant]
     Indication: CROHN'S DISEASE
     Dosage: 3000 MG DAILY
     Route: 048
  8. AZATHIOPRINE [Concomitant]
     Indication: CROHN'S DISEASE
     Dosage: 50 MG DAILY
     Route: 048
  9. HERBAL MEDICINE (DAIKENCHUTO) [Concomitant]
     Indication: CROHN'S DISEASE
     Dosage: 15 GRAMS DAILY
     Route: 048
  10. METRONIDAZOLE [Concomitant]
     Indication: CROHN'S DISEASE
     Dosage: 500 MG DAILY
     Route: 048
     Dates: start: 20110203, end: 20110221

REACTIONS (1)
  - INTESTINAL PERFORATION [None]
